FAERS Safety Report 7934846-X (Version None)
Quarter: 2011Q4

REPORT INFORMATION
  Report Type: 
  Country: None (occurrence: None)
  Receive Date: 20111122
  Receipt Date: 20111110
  Transmission Date: 20120403
  Serious: No
  Sender: FDA-Public Use
  Company Number: US-B.I. PHARMACEUTICALS,INC./RIDGEFIELD-2011-BP-26001BP

PATIENT
  Age: 41 Year
  Sex: Female

DRUGS (6)
  1. SEROQUEL [Concomitant]
     Indication: DEPRESSION
  2. LITHIUM CARBONATE [Concomitant]
     Indication: BIPOLAR DISORDER
  3. SEROQUEL [Concomitant]
     Indication: BIPOLAR DISORDER
  4. NEURONTIN [Concomitant]
     Indication: BIPOLAR DISORDER
  5. ZANTAC 150 [Suspect]
     Indication: DYSPEPSIA
     Dosage: 150 MG
     Route: 048
     Dates: start: 20111103
  6. LITHIUM CARBONATE [Concomitant]
     Indication: DEPRESSION

REACTIONS (1)
  - AMPHETAMINES POSITIVE [None]
